FAERS Safety Report 23513041 (Version 1)
Quarter: 2024Q1

REPORT INFORMATION
  Report Type: Spontaneous
  Country: US (occurrence: None)
  Receive Date: 20240209
  Receipt Date: 20240209
  Transmission Date: 20240409
  Serious: Yes (Hospitalization)
  Sender: FDA-Public Use
  Company Number: None

PATIENT
  Age: 34 Year
  Sex: Female
  Weight: 64.35 kg

DRUGS (3)
  1. LEVONORGESTREL AND ETHINYL ESTRADIOL [Suspect]
     Active Substance: ETHINYL ESTRADIOL\LEVONORGESTREL
     Indication: Contraception
     Dates: start: 20240121, end: 20240206
  2. Generic Vyvance 50mg [Concomitant]
  3. VITAMINS [Concomitant]
     Active Substance: VITAMINS

REACTIONS (7)
  - Arthralgia [None]
  - Asthenia [None]
  - Fatigue [None]
  - Hepatic enzyme increased [None]
  - Nausea [None]
  - Pain [None]
  - Hypoaesthesia [None]

NARRATIVE: CASE EVENT DATE: 20240202
